FAERS Safety Report 11196947 (Version 1)
Quarter: 2015Q2

REPORT INFORMATION
  Report Type: Spontaneous
  Country: SE (occurrence: SE)
  Receive Date: 20150617
  Receipt Date: 20150617
  Transmission Date: 20150821
  Serious: Yes (Hospitalization)
  Sender: FDA-Public Use
  Company Number: SE-SA-2015SA085369

PATIENT
  Age: 68 Year
  Sex: Male

DRUGS (8)
  1. LOSARTAN [Suspect]
     Active Substance: LOSARTAN
     Route: 065
     Dates: start: 20150520, end: 20150520
  2. NOZINAN [Suspect]
     Active Substance: LEVOMEPROMAZINE
     Route: 065
     Dates: start: 20150520, end: 20150520
  3. DEPAKINE [Suspect]
     Active Substance: VALPROATE SODIUM
     Route: 065
     Dates: start: 20150520, end: 20150520
  4. IKTORIVIL [Suspect]
     Active Substance: CLONAZEPAM
     Route: 065
     Dates: start: 20150520, end: 20150520
  5. FURIX [Suspect]
     Active Substance: FUROSEMIDE
     Route: 065
     Dates: start: 20150520, end: 20150520
  6. SIMVASTATIN. [Suspect]
     Active Substance: SIMVASTATIN
     Route: 065
     Dates: start: 20150520, end: 20150520
  7. ERGENYL [Suspect]
     Active Substance: VALPROIC ACID
     Route: 065
     Dates: start: 20150520, end: 20150520
  8. SEROQUEL [Suspect]
     Active Substance: QUETIAPINE FUMARATE
     Route: 065
     Dates: start: 20150520, end: 20150520

REACTIONS (3)
  - Toxicity to various agents [Recovering/Resolving]
  - Rhabdomyolysis [Recovering/Resolving]
  - Acute kidney injury [Recovering/Resolving]

NARRATIVE: CASE EVENT DATE: 20150520
